FAERS Safety Report 6000238-6 (Version None)
Quarter: 2008Q4

REPORT INFORMATION
  Report Type: 
  Country: None (occurrence: None)
  Receive Date: 20081211
  Receipt Date: 20081211
  Transmission Date: 20090506
  Serious: Yes (Other)
  Sender: FDA-Public Use
  Company Number: None

PATIENT
  Age: 68 Year
  Sex: Male
  Weight: 86.1834 kg

DRUGS (1)
  1. VYTORIN [Suspect]
     Indication: DYSLIPIDAEMIA
     Dosage: 10/20 MG DAILY ORAL
     Route: 048
     Dates: start: 20070501, end: 20081001

REACTIONS (2)
  - ABNORMAL DREAMS [None]
  - INSOMNIA [None]
